FAERS Safety Report 7943251-1 (Version None)
Quarter: 2011Q4

REPORT INFORMATION
  Report Type: 
  Country: None (occurrence: None)
  Receive Date: 20111128
  Receipt Date: 20111122
  Transmission Date: 20120403
  Serious: Yes (Other)
  Sender: FDA-Public Use
  Company Number: PHHO2011AU11227

PATIENT
  Sex: Male
  Weight: 65 kg

DRUGS (6)
  1. THIAMINE HCL [Concomitant]
  2. MAGMIN [Concomitant]
  3. OSTELIN [Concomitant]
  4. NEUROTON [Concomitant]
  5. IMATINIB MESYLATE [Suspect]
     Indication: SCLERODERMA
     Dosage: 100 MG, DAILY
     Route: 048
     Dates: start: 20100801
  6. RAMIPRIL [Concomitant]

REACTIONS (1)
  - THYROIDITIS ACUTE [None]
